FAERS Safety Report 7927956-4 (Version None)
Quarter: 2011Q4

REPORT INFORMATION
  Report Type: 
  Country: None (occurrence: None)
  Receive Date: 20111116
  Receipt Date: 20111026
  Transmission Date: 20120403
  Serious: Yes (Other)
  Sender: FDA-Public Use
  Company Number: M1104298

PATIENT
  Age: 67 Year
  Sex: Male

DRUGS (5)
  1. WARFARIN SODIUM [Concomitant]
  2. PACERONE [Suspect]
     Indication: HEART RATE IRREGULAR
     Dosage: 1 IN 1 D, ORAL
     Route: 048
     Dates: start: 20090101, end: 20111001
  3. THREE OR FOUR UNSPECIFIED MEDICATIONS [Concomitant]
  4. METOPROLOL TARTRATE [Concomitant]
  5. OMEPRAZOLE [Concomitant]

REACTIONS (8)
  - HEART RATE DECREASED [None]
  - DYSPNOEA [None]
  - INTERNATIONAL NORMALISED RATIO DECREASED [None]
  - VISUAL ACUITY REDUCED [None]
  - THYROID CANCER [None]
  - LUNG NEOPLASM MALIGNANT [None]
  - PARAESTHESIA [None]
  - HYPOAESTHESIA [None]
